FAERS Safety Report 9060760 (Version 2)
Quarter: 2013Q1

REPORT INFORMATION
  Report Type: Report from Study
  Country: ES (occurrence: ES)
  Receive Date: 20130128
  Receipt Date: 20130128
  Transmission Date: 20140127
  Serious: Yes (Hospitalization)
  Sender: FDA-Public Use
  Company Number: ES-ROCHE-1177606

PATIENT
  Age: 82 Year
  Sex: Male

DRUGS (3)
  1. VEMURAFENIB [Suspect]
     Indication: MALIGNANT MELANOMA
     Dosage: DATE OF MOST RECENT DOSE PRIOR TO SAE: 26/SEP/2012
     Route: 048
     Dates: start: 20120803, end: 20120927
  2. VEMURAFENIB [Suspect]
     Route: 048
     Dates: start: 20121001
  3. SINTROM [Concomitant]
     Route: 065
     Dates: start: 2012

REACTIONS (1)
  - Cardiac failure [Recovered/Resolved]
